FAERS Safety Report 9204640 (Version 1)
Quarter: 2013Q2

REPORT INFORMATION
  Report Type: Spontaneous
  Country: US (occurrence: US)
  Receive Date: 20130402
  Receipt Date: 20130402
  Transmission Date: 20140414
  Serious: Yes (Other)
  Sender: FDA-Public Use
  Company Number: US-BAYER-2013-036791

PATIENT
  Age: 63 Year
  Sex: Female
  Weight: 58.96 kg

DRUGS (11)
  1. PHILLIPS^ MILK OF MAGNESIA [Suspect]
     Indication: CONSTIPATION
     Dosage: 4  TABLESPOONS, PRN
     Route: 048
     Dates: start: 201210, end: 201303
  2. BENICAR [Concomitant]
  3. AMITRIPTYLINE [Concomitant]
  4. LORAZEPAM [Concomitant]
  5. FLORINEF [Concomitant]
  6. OMEPRAZOLE [Concomitant]
  7. SODIUM [Concomitant]
  8. LORTAB [Concomitant]
  9. PROMETHAZINE [Concomitant]
  10. CORTISONE [Concomitant]
     Indication: HAEMORRHOIDS
  11. CORTISONE [Concomitant]
     Indication: RECTAL FISSURE

REACTIONS (3)
  - Oral mucosal blistering [Not Recovered/Not Resolved]
  - Lip blister [Not Recovered/Not Resolved]
  - Drug administration error [None]
